FAERS Safety Report 5319952-0 (Version None)
Quarter: 2007Q2

REPORT INFORMATION
  Report Type: 
  Country: None (occurrence: None)
  Receive Date: 20070502
  Receipt Date: 20070419
  Transmission Date: 20071010
  Serious: Yes (Hospitalization)
  Sender: FDA-Public Use
  Company Number: 230014M07DEU

PATIENT

DRUGS (1)
  1. REBIF (INTERRERON BETA) [Suspect]

REACTIONS (5)
  - FAT NECROSIS [None]
  - INJECTION SITE INFLAMMATION [None]
  - INJECTION SITE MASS [None]
  - INJECTION SITE NECROSIS [None]
  - SKIN LESION [None]
